FAERS Safety Report 7655414-3 (Version None)
Quarter: 2011Q3

REPORT INFORMATION
  Report Type: 
  Country: None (occurrence: None)
  Receive Date: 20110729
  Receipt Date: 20110714
  Transmission Date: 20111222
  Serious: Yes (Other)
  Sender: FDA-Public Use
  Company Number: AUR-APL-2011-04267

PATIENT
  Sex: Female

DRUGS (3)
  1. CITALOPRAM HYDROBROMIDE [Suspect]
     Indication: DEPRESSION
     Dosage: (20 MG), ORAL
     Route: 048
     Dates: start: 20110117, end: 20110101
  2. CITALOPRAM HYDROBROMIDE [Suspect]
     Indication: ANXIETY
     Dosage: (20 MG), ORAL
     Route: 048
     Dates: start: 20110117, end: 20110101
  3. PREMPAK-C (ESTROGENS CONJUGATED W/NORGESTREL) [Concomitant]

REACTIONS (8)
  - ANXIETY [None]
  - FEELING DRUNK [None]
  - MALAISE [None]
  - DEPRESSION [None]
  - SUICIDAL IDEATION [None]
  - SEDATION [None]
  - PRODUCT SUBSTITUTION ISSUE [None]
  - DRUG INEFFECTIVE [None]
